FAERS Safety Report 5309816-0 (Version None)
Quarter: 2007Q2

REPORT INFORMATION
  Report Type: 
  Country: None (occurrence: None)
  Receive Date: 20070427
  Receipt Date: 20070416
  Transmission Date: 20071010
  Serious: Yes (Other)
  Sender: FDA-Public Use
  Company Number: JP-ROCHE-491363

PATIENT
  Age: 9 Year
  Sex: Female
  Weight: 25 kg

DRUGS (4)
  1. TAMIFLU [Suspect]
     Dosage: DOSE FORM: DRY SYRUP.
     Route: 048
     Dates: start: 20070330, end: 20070330
  2. CLARITHROMYCIN [Concomitant]
     Route: 048
     Dates: start: 20070329, end: 20070330
  3. ZADITEN [Concomitant]
     Route: 048
     Dates: start: 20070329, end: 20070330
  4. ASVERIN [Concomitant]
     Route: 048
     Dates: start: 20070329, end: 20070330

REACTIONS (1)
  - ABNORMAL BEHAVIOUR [None]
